FAERS Safety Report 5420087-7 (Version None)
Quarter: 2007Q3

REPORT INFORMATION
  Report Type: 
  Country: None (occurrence: None)
  Receive Date: 20070820
  Receipt Date: 20070814
  Transmission Date: 20080115
  Serious: Yes (Other)
  Sender: FDA-Public Use
  Company Number: GB-PFIZER INC-2007067761

PATIENT
  Age: 32 Year
  Sex: Male
  Weight: 76 kg

DRUGS (2)
  1. CHAMPIX [Suspect]
     Indication: SMOKING CESSATION THERAPY
     Route: 048
     Dates: start: 20070713, end: 20070727
  2. PROPRANOLOL [Concomitant]
     Indication: ANXIETY
     Dosage: TEXT:80 MG DAILY
     Route: 048

REACTIONS (1)
  - DEPRESSED MOOD [None]
